FAERS Safety Report 9853823 (Version 1)
Quarter: 2014Q1

REPORT INFORMATION
  Report Type: Spontaneous
  Country: US (occurrence: US)
  Receive Date: 20140129
  Receipt Date: 20140129
  Transmission Date: 20141002
  Serious: No
  Sender: FDA-Public Use
  Company Number: US-GLAXOSMITHKLINE-A1050077A

PATIENT
  Sex: Female

DRUGS (2)
  1. WELLBUTRIN [Suspect]
     Indication: ANXIETY
     Dosage: 1TAB AS REQUIRED
     Route: 065
     Dates: start: 201310
  2. NO CONCURRENT MEDICATIONS [Concomitant]

REACTIONS (2)
  - Paraesthesia [Unknown]
  - Dizziness [Unknown]
